FAERS Safety Report 17690877 (Version 1)
Quarter: 2020Q2

REPORT INFORMATION
  Report Type: Spontaneous
  Country: US (occurrence: US)
  Receive Date: 20200422
  Receipt Date: 20200422
  Transmission Date: 20200714
  Serious: No
  Sender: FDA-Public Use
  Company Number: US-CELGENEUS-USA-20200405231

PATIENT
  Sex: Female

DRUGS (2)
  1. OTEZLA [Suspect]
     Active Substance: APREMILAST
     Indication: PSORIATIC ARTHROPATHY
     Dosage: 10/20/30 MG TITRATION PACK
     Route: 048
  2. OTEZLA [Suspect]
     Active Substance: APREMILAST
     Dosage: DAY 1: 10MG IN AM. DAY 2: 10MG IN AM + PM. DAY?3: 10MG IN AM + 20MG IN PM. DAY 4: 20MG IN AM + PM. D
     Route: 048

REACTIONS (1)
  - Drug ineffective [Unknown]
